FAERS Safety Report 8761494 (Version 1)
Quarter: 2012Q4

REPORT INFORMATION
  Report Type: 
  Country: US (occurrence: US)
  Receive Date: 20120830
  Receipt Date: 20120830
  Transmission Date: 20130627
  Serious: Yes (Disabling)
  Sender: FDA-Public Use
  Company Number: US-JNJCP-30000124638

PATIENT
  Sex: Female

DRUGS (1)
  1. REMBRANDT PLUS PRXD FRSH MNT TOOTHPASTE USA RBPPMTUS [Suspect]
     Indication: DENTAL CLEANING
     Dosage: thrice daily
     Route: 004
     Dates: end: 201205

REACTIONS (1)
  - Ageusia [Recovering/Resolving]
